FAERS Safety Report 11195629 (Version 1)
Quarter: 2015Q2

REPORT INFORMATION
  Report Type: Spontaneous
  Country: US (occurrence: None)
  Receive Date: 20150615
  Receipt Date: 20150615
  Transmission Date: 20150821
  Serious: Yes (Disabling)
  Sender: FDA-Public Use
  Company Number: None

PATIENT
  Age: 73 Year
  Sex: Female

DRUGS (1)
  1. LEVAQUIN [Suspect]
     Active Substance: LEVOFLOXACIN
     Indication: PNEUMONIA
     Dosage: 2 PILLS A DAY
     Route: 048

REACTIONS (7)
  - Muscular weakness [None]
  - Asthenia [None]
  - Fatigue [None]
  - Tendon pain [None]
  - Pain [None]
  - Myalgia [None]
  - Mobility decreased [None]

NARRATIVE: CASE EVENT DATE: 20150429
